FAERS Safety Report 21469236 (Version 3)
Quarter: 2023Q1

REPORT INFORMATION
  Report Type: Spontaneous
  Country: MX (occurrence: MX)
  Receive Date: 20221018
  Receipt Date: 20230123
  Transmission Date: 20230418
  Serious: Yes (Other)
  Sender: FDA-Public Use
  Company Number: MX-NOVOPROD-968612

PATIENT
  Age: 54 Year
  Sex: Male
  Weight: 140 kg

DRUGS (5)
  1. TRESIBA [Suspect]
     Active Substance: INSULIN DEGLUDEC
     Dosage: 38 IU, QD(20 IU AT MORNING AND 18 IU AT NIGHT)
  2. TRESIBA [Suspect]
     Active Substance: INSULIN DEGLUDEC
     Indication: Diabetes mellitus
     Dosage: 38 IU, QD(20 IU AT MORNING AND 18 IU AT NIGHT)
     Dates: start: 202109
  3. OZEMPIC [Concomitant]
     Active Substance: SEMAGLUTIDE
     Indication: Diabetes mellitus
     Dosage: UNK
     Dates: start: 202109, end: 202211
  4. DAPAGLIFLOZIN [Concomitant]
     Active Substance: DAPAGLIFLOZIN
     Indication: Diabetes mellitus
     Dosage: UNK
  5. AMLODIPINE BESYLATE\FIMASARTAN POTASSIUM TRIHYDRATE [Concomitant]
     Active Substance: AMLODIPINE BESYLATE\FIMASARTAN POTASSIUM TRIHYDRATE
     Indication: Hypertension

REACTIONS (4)
  - Blood glucose increased [Recovered/Resolved]
  - Device malfunction [Unknown]
  - Device mechanical issue [Unknown]
  - Incorrect dose administered by device [Unknown]

NARRATIVE: CASE EVENT DATE: 20221001
